FAERS Safety Report 6221443-X (Version None)
Quarter: 2009Q2

REPORT INFORMATION
  Report Type: 
  Country: None (occurrence: None)
  Receive Date: 20090610
  Receipt Date: 20090529
  Transmission Date: 20091009
  Serious: Yes (Hospitalization)
  Sender: FDA-Public Use
  Company Number: IN-ELI_LILLY_AND_COMPANY-IN200906000141

PATIENT
  Age: 70 Year
  Sex: Female

DRUGS (4)
  1. HUMALOG [Suspect]
     Indication: TYPE 2 DIABETES MELLITUS
     Dosage: 15 UNITS
     Route: 058
     Dates: start: 20090522, end: 20090528
  2. HUMALOG [Suspect]
     Dosage: 60 U, UNKNOWN
     Route: 058
     Dates: start: 20090528, end: 20090529
  3. LANTUS [Concomitant]
     Dosage: 20 U, UNKNOWN
     Route: 065
     Dates: start: 20090522
  4. ORAL ANTIDIABETICS [Concomitant]
     Dosage: UNK, UNKNOWN
     Route: 065

REACTIONS (2)
  - BLOOD GLUCOSE INCREASED [None]
  - NO THERAPEUTIC RESPONSE [None]
